FAERS Safety Report 4344817-0 (Version None)
Quarter: 2004Q2

REPORT INFORMATION
  Report Type: 
  Country: None (occurrence: None)
  Receive Date: 20040420
  Receipt Date: 20040408
  Transmission Date: 20050107
  Serious: Yes (Hospitalization)
  Sender: FDA-Public Use
  Company Number: US-JNJFOC-20031005037

PATIENT
  Age: 67 Year
  Sex: Female
  Weight: 63.5036 kg

DRUGS (6)
  1. REMICADE [Suspect]
     Dosage: INTRAVENOUS
     Route: 042
     Dates: start: 20011115
  2. REMICADE [Suspect]
     Dosage: INTRAVENOUS
     Route: 042
     Dates: start: 20030801
  3. COUMADIN [Concomitant]
  4. ANTIDEPRESSANT (ANTIDEPRESSANTS) [Concomitant]
  5. B-12 INJECTIONS (CYANOCOBALAMIN) [Concomitant]
  6. TYLENOL [Concomitant]

REACTIONS (3)
  - CEREBROVASCULAR ACCIDENT [None]
  - CHEST PAIN [None]
  - POST PROCEDURAL COMPLICATION [None]
